FAERS Safety Report 17858745 (Version 1)
Quarter: 2020Q2

REPORT INFORMATION
  Report Type: Report from Study
  Country: None (occurrence: US)
  Receive Date: 20200604
  Receipt Date: 20200604
  Transmission Date: 20200714
  Serious: No
  Sender: FDA-Public Use
  Company Number: US-US WORLDMEDS, LLC-USW202002-000360

PATIENT
  Age: 85 Year
  Sex: Male

DRUGS (1)
  1. APOKYN [Suspect]
     Active Substance: APOMORPHINE HYDROCHLORIDE
     Indication: PARKINSON^S DISEASE
     Dosage: 30MG/3ML, 0.3 ML 0-2 TIMES A DAY
     Route: 058
     Dates: start: 20191220

REACTIONS (2)
  - Visual impairment [Unknown]
  - Influenza like illness [Unknown]
